FAERS Safety Report 20515635 (Version 1)
Quarter: 2022Q1

REPORT INFORMATION
  Report Type: Spontaneous
  Country: NZ (occurrence: NZ)
  Receive Date: 20220224
  Receipt Date: 20220224
  Transmission Date: 20220423
  Serious: Yes (Other)
  Sender: FDA-Public Use
  Company Number: NZ-BAXTER-2022BAX003678

PATIENT
  Sex: Female

DRUGS (5)
  1. WATER FOR INJECTION [Suspect]
     Active Substance: WATER
     Indication: Parenteral nutrition
     Route: 065
     Dates: start: 20220214
  2. CERNEVIT [Suspect]
     Active Substance: VITAMINS
     Indication: Parenteral nutrition
     Route: 065
     Dates: start: 20220214
  3. OLIMEL E [Suspect]
     Active Substance: AMINO ACIDS\DEXTROSE\ELECTROLYTES NOS\SOYBEAN OIL
     Indication: Parenteral nutrition
     Route: 065
     Dates: start: 20220214
  4. MINERALS [Suspect]
     Active Substance: MINERALS
     Indication: Parenteral nutrition
     Route: 065
     Dates: start: 20220214
  5. ASCORBIC ACID [Suspect]
     Active Substance: ASCORBIC ACID
     Indication: Parenteral nutrition
     Route: 065
     Dates: start: 20220214

REACTIONS (1)
  - Septic shock [Unknown]

NARRATIVE: CASE EVENT DATE: 20220214
